FAERS Safety Report 5152579-2 (Version None)
Quarter: 2006Q4

REPORT INFORMATION
  Report Type: 
  Country: None (occurrence: None)
  Receive Date: 20061109
  Receipt Date: 20061027
  Transmission Date: 20070319
  Serious: Yes (Death)
  Sender: FDA-Public Use
  Company Number: 2006117580

PATIENT
  Age: 53 Year
  Sex: Male

DRUGS (1)
  1. SOLU-MEDROL [Suspect]
     Indication: HEAD INJURY
     Dosage: 1 GRAM (1 GRAM, 1 IN 1 D), INTRAVENOUS
     Route: 042
     Dates: start: 20060917, end: 20060919

REACTIONS (4)
  - GASTRIC HAEMORRHAGE [None]
  - HYPERTENSION [None]
  - INTESTINAL HAEMORRHAGE [None]
  - SHOCK [None]
